FAERS Safety Report 7418810-5 (Version None)
Quarter: 2011Q2

REPORT INFORMATION
  Report Type: 
  Country: None (occurrence: None)
  Receive Date: 20110408
  Receipt Date: 20110330
  Transmission Date: 20111010
  Serious: Yes (Other)
  Sender: FDA-Public Use
  Company Number: AUSAB-11-0263

PATIENT
  Age: 55 Year
  Sex: Female

DRUGS (2)
  1. ABRAXANE [Suspect]
     Indication: BREAST CANCER METASTATIC
     Dosage: (125 MG/M2)
     Dates: start: 20100920
  2. PREDNISONE [Concomitant]

REACTIONS (1)
  - PNEUMONITIS [None]
